FAERS Safety Report 11238195 (Version 5)
Quarter: 2015Q4

REPORT INFORMATION
  Report Type: Report from Study
  Country: FR (occurrence: FR)
  Receive Date: 20150703
  Receipt Date: 20151218
  Transmission Date: 20160304
  Serious: Yes (Hospitalization, Other)
  Sender: FDA-Public Use
  Company Number: FR-GLAXOSMITHKLINE-FR2015GSK094639

PATIENT
  Age: 69 Year
  Sex: Male
  Weight: 77 kg

DRUGS (8)
  1. CRESTOR [Concomitant]
     Active Substance: ROSUVASTATIN CALCIUM
     Route: 048
  2. PAZOPANIB [Suspect]
     Active Substance: PAZOPANIB
     Indication: SOFT TISSUE SARCOMA
     Dosage: 400 MG, QD
     Route: 048
     Dates: start: 20150610
  3. GEMCITABINE [Suspect]
     Active Substance: GEMCITABINE\GEMCITABINE HYDROCHLORIDE
     Dosage: 1250 MG, UNK
     Route: 013
  4. PAZOPANIB [Suspect]
     Active Substance: PAZOPANIB
     Dosage: 400 MG, UNK
     Route: 048
  5. GEMCITABINE [Suspect]
     Active Substance: GEMCITABINE\GEMCITABINE HYDROCHLORIDE
     Indication: SOFT TISSUE SARCOMA
     Dosage: 1250 MG, UNK
     Route: 013
     Dates: start: 20150610
  6. BISOPROLOL [Concomitant]
     Active Substance: BISOPROLOL
     Route: 048
  7. CRESTOR [Concomitant]
     Active Substance: ROSUVASTATIN CALCIUM
     Indication: HYPERLIPIDAEMIA
     Route: 048
  8. BISOPROLOL [Concomitant]
     Active Substance: BISOPROLOL
     Indication: HYPERTENSION
     Route: 048

REACTIONS (1)
  - Febrile bone marrow aplasia [Unknown]

NARRATIVE: CASE EVENT DATE: 20150626
